FAERS Safety Report 6148863-6 (Version None)
Quarter: 2009Q2

REPORT INFORMATION
  Report Type: 
  Country: None (occurrence: None)
  Receive Date: 20090408
  Receipt Date: 20090324
  Transmission Date: 20091009
  Serious: Yes (Hospitalization)
  Sender: FDA-Public Use
  Company Number: ES-GENENTECH-277033

PATIENT
  Age: 57 Year
  Sex: Male

DRUGS (8)
  1. AVASTIN [Suspect]
     Indication: COLON CANCER
     Dosage: 5 MG/M2, UNK
     Route: 042
     Dates: start: 20080701, end: 20080930
  2. IRINOTECAN HCL [Suspect]
     Indication: COLON CANCER
     Dosage: 300 MG/M2, UNK
     Route: 042
     Dates: start: 20080701
  3. ERBITUX [Suspect]
     Indication: COLON CANCER
     Dosage: 250 MG/M2, UNK
     Route: 042
     Dates: start: 20080701
  4. HIBOR [Suspect]
     Indication: PELVIC VENOUS THROMBOSIS
     Dosage: UNK
     Dates: start: 20080901
  5. FERROUS GLYCINE SULFATE [Concomitant]
     Indication: DRUG USE FOR UNKNOWN INDICATION
  6. KARVEA [Concomitant]
     Indication: DRUG USE FOR UNKNOWN INDICATION
  7. CALCIUM CARBONATE [Concomitant]
  8. URBAL [Concomitant]
     Indication: DRUG USE FOR UNKNOWN INDICATION

REACTIONS (8)
  - GASTROINTESTINAL HAEMORRHAGE [None]
  - HAEMOLYTIC URAEMIC SYNDROME [None]
  - MICROANGIOPATHIC HAEMOLYTIC ANAEMIA [None]
  - PANCYTOPENIA [None]
  - RENAL FAILURE ACUTE [None]
  - RENAL TUBULAR NECROSIS [None]
  - THROMBOCYTOPENIA [None]
  - THROMBOSIS [None]
